FAERS Safety Report 16953743 (Version 1)
Quarter: 2019Q4

REPORT INFORMATION
  Report Type: Spontaneous
  Country: JP (occurrence: JP)
  Receive Date: 20191023
  Receipt Date: 20191023
  Transmission Date: 20200122
  Serious: Yes (Other)
  Sender: FDA-Public Use
  Company Number: JP-PFIZER INC-2019329352

PATIENT
  Age: 76 Year
  Sex: Female
  Weight: 37.5 kg

DRUGS (9)
  1. PROMAC D [Concomitant]
     Active Substance: POLAPREZINC
     Dosage: 75 MG, 2X/DAY
     Route: 048
     Dates: start: 20190426, end: 20190712
  2. BELSOMRA [Concomitant]
     Active Substance: SUVOREXANT
     Dosage: 15 MG, 1X/DAY
     Route: 048
     Dates: start: 20190517, end: 20190613
  3. EFFEXOR [Suspect]
     Active Substance: VENLAFAXINE HYDROCHLORIDE
     Indication: DEPRESSION
     Dosage: 37.5 MG, 1X/DAY
     Route: 048
     Dates: start: 20190607, end: 20190613
  4. REMERON [Concomitant]
     Active Substance: MIRTAZAPINE
     Dosage: 7.5 MG, 1X/DAY
     Route: 048
     Dates: start: 20190427, end: 20190808
  5. MAGMITT [Concomitant]
     Active Substance: MAGNESIUM OXIDE
     Dosage: 660 MG, 2X/DAY
     Route: 048
     Dates: start: 20190510, end: 20190802
  6. BELSOMRA [Concomitant]
     Active Substance: SUVOREXANT
     Dosage: 20 MG, 1X/DAY
     Route: 048
     Dates: start: 20190618, end: 20190808
  7. ROZEREM [Concomitant]
     Active Substance: RAMELTEON
     Dosage: 8 MG, 1X/DAY
     Route: 048
     Dates: start: 20190618, end: 20190705
  8. EFFEXOR [Suspect]
     Active Substance: VENLAFAXINE HYDROCHLORIDE
     Dosage: 150 MG, DAILY
  9. EFFEXOR [Suspect]
     Active Substance: VENLAFAXINE HYDROCHLORIDE
     Dosage: 75 MG, 1X/DAY
     Route: 048
     Dates: start: 20190614, end: 20190627

REACTIONS (3)
  - Liver function test abnormal [Recovered/Resolved]
  - Femoral neck fracture [Recovered/Resolved]
  - Fall [Unknown]

NARRATIVE: CASE EVENT DATE: 20190617
